FAERS Safety Report 8195459-0 (Version None)
Quarter: 2012Q1

REPORT INFORMATION
  Report Type: 
  Country: None (occurrence: None)
  Receive Date: 20120308
  Receipt Date: 20120301
  Transmission Date: 20120608
  Serious: Yes (Hospitalization)
  Sender: FDA-Public Use
  Company Number: PHEH2012US004983

PATIENT
  Sex: Female

DRUGS (1)
  1. EXJADE [Suspect]
     Indication: MYCOSIS FUNGOIDES
     Dosage: 4000 MG, DAILY
     Route: 048
     Dates: start: 20100622

REACTIONS (1)
  - FEELING ABNORMAL [None]
